FAERS Safety Report 5728172-7 (Version None)
Quarter: 2008Q2

REPORT INFORMATION
  Report Type: 
  Country: None (occurrence: None)
  Receive Date: 20080505
  Receipt Date: 20080428
  Transmission Date: 20081010
  Serious: Yes (Congenital Anomaly, Other)
  Sender: FDA-Public Use
  Company Number: GB-ABBOTT-08P-167-0449183-00

PATIENT
  Sex: Female
  Weight: 1.83 kg

DRUGS (2)
  1. VALPROATE SODIUM [Suspect]
     Indication: DRUG EXPOSURE DURING PREGNANCY
     Route: 064
  2. VALPROATE SODIUM [Suspect]
     Indication: CONVULSION PROPHYLAXIS

REACTIONS (19)
  - BONE DISORDER [None]
  - CONGENITAL HYDROCEPHALUS [None]
  - DEVELOPMENTAL DELAY [None]
  - DRUG EXPOSURE DURING PREGNANCY [None]
  - DYSMORPHISM [None]
  - EDUCATIONAL PROBLEM [None]
  - FOETAL ANTICONVULSANT SYNDROME [None]
  - GRAND MAL CONVULSION [None]
  - HYPERTELORISM OF ORBIT [None]
  - JOINT DISLOCATION [None]
  - KIDNEY FIBROSIS [None]
  - LOWER LIMB FRACTURE [None]
  - NEPHROLITHIASIS [None]
  - OSTEOPOROSIS [None]
  - PETIT MAL EPILEPSY [None]
  - PREMATURE BABY [None]
  - SCOLIOSIS [None]
  - SPINA BIFIDA [None]
  - STRABISMUS [None]
